FAERS Safety Report 23793966 (Version 2)
Quarter: 2024Q2

REPORT INFORMATION
  Report Type: Other
  Country: US (occurrence: None)
  Receive Date: 20240429
  Receipt Date: 20240502
  Transmission Date: 20240716
  Serious: Yes (Other)
  Sender: FDA-Public Use
  Company Number: US-ROCHE-3550618

PATIENT
  Age: 54 Year
  Sex: Female

DRUGS (13)
  1. OBINUTUZUMAB [Suspect]
     Active Substance: OBINUTUZUMAB
     Indication: B-cell lymphoma
     Route: 065
  2. RITUXIMAB [Suspect]
     Active Substance: RITUXIMAB
     Indication: B-cell lymphoma
     Route: 065
  3. BENDAMUSTINE [Concomitant]
     Active Substance: BENDAMUSTINE
     Indication: B-cell lymphoma
  4. DIPHENHYDRAMINE [Concomitant]
     Active Substance: DIPHENHYDRAMINE
  5. PREDNISONE [Concomitant]
     Active Substance: PREDNISONE
  6. MONTELUKAST [Concomitant]
     Active Substance: MONTELUKAST SODIUM
  7. ASPIRIN [Concomitant]
     Active Substance: ASPIRIN
  8. FAMOTIDINE [Concomitant]
     Active Substance: FAMOTIDINE
  9. ONDANSETRON [Concomitant]
     Active Substance: ONDANSETRON
  10. EPINEPHRINE [Concomitant]
     Active Substance: EPINEPHRINE
  11. DEXAMETHASONE [Concomitant]
     Active Substance: DEXAMETHASONE
  12. LORATADINE [Concomitant]
     Active Substance: LORATADINE
  13. OMALIZUMAB [Concomitant]
     Active Substance: OMALIZUMAB

REACTIONS (2)
  - Anaphylactic reaction [Unknown]
  - Cytokine release syndrome [Unknown]
